FAERS Safety Report 5967939-7 (Version None)
Quarter: 2008Q4

REPORT INFORMATION
  Report Type: 
  Country: None (occurrence: None)
  Receive Date: 20081121
  Receipt Date: 20081121
  Transmission Date: 20090506
  Serious: No
  Sender: FDA-Public Use
  Company Number: None

PATIENT
  Age: 35 Year
  Sex: Female
  Weight: 77.1115 kg

DRUGS (1)
  1. ACNE SOLUTIONS CLEARING MOISTURI CLINIQUE CLINIQUE [Suspect]
     Indication: ACNE
     Dosage: USE IN AM AND PM TWICE A DAY
     Dates: start: 20081021, end: 20081022

REACTIONS (4)
  - BURNING SENSATION [None]
  - PRURITUS [None]
  - RASH ERYTHEMATOUS [None]
  - SWELLING FACE [None]
